FAERS Safety Report 7285010-1 (Version None)
Quarter: 2011Q1

REPORT INFORMATION
  Report Type: 
  Country: None (occurrence: None)
  Receive Date: 20110210
  Receipt Date: 20110201
  Transmission Date: 20110831
  Serious: Yes (Other)
  Sender: FDA-Public Use
  Company Number: GB-SANOFI-AVENTIS-2011SA006992

PATIENT
  Age: 29 Year
  Sex: Female

DRUGS (4)
  1. FEXOFENADINE HCL [Suspect]
     Route: 048
     Dates: start: 20110110, end: 20110111
  2. ASPIRIN [Concomitant]
     Route: 048
  3. E.45 [Concomitant]
     Route: 061
  4. BENZYDAMINE [Concomitant]
     Route: 065

REACTIONS (1)
  - HYPERTENSION [None]
